FAERS Safety Report 5815970-4 (Version None)
Quarter: 2008Q3

REPORT INFORMATION
  Report Type: 
  Country: None (occurrence: None)
  Receive Date: 20080716
  Receipt Date: 20080716
  Transmission Date: 20090109
  Serious: Yes (Life-Threatening)
  Sender: FDA-Public Use
  Company Number: None

PATIENT
  Age: 50 Year
  Sex: Male
  Weight: 96.1626 kg

DRUGS (5)
  1. VERAMYST [Suspect]
     Indication: MULTIPLE ALLERGIES
     Dosage: 2 SPRAYS EACH BID NASAL, ONE TIME ONLY
     Route: 045
     Dates: start: 20080626, end: 20080626
  2. KETOROLAC 60 MG WOCKHARDT LIMITED, MUMBAI, INDIA [Suspect]
     Indication: BACK PAIN
     Dosage: 60 MG IM
     Route: 030
     Dates: start: 20070626, end: 20070716
  3. KETOROLAC 60 MG WOCKHARDT LIMITED, MUMBAI, INDIA [Suspect]
     Indication: INTERVERTEBRAL DISC DEGENERATION
     Dosage: 60 MG IM
     Route: 030
     Dates: start: 20070626, end: 20070716
  4. KETOROLAC 60 MG WOCKHARDT LIMITED, MUMBAI, INDIA [Suspect]
     Indication: BACK PAIN
     Dosage: 60 MG IM
     Route: 030
     Dates: start: 20080626
  5. KETOROLAC 60 MG WOCKHARDT LIMITED, MUMBAI, INDIA [Suspect]
     Indication: INTERVERTEBRAL DISC DEGENERATION
     Dosage: 60 MG IM
     Route: 030
     Dates: start: 20080626

REACTIONS (11)
  - BLOOD PRESSURE DECREASED [None]
  - BLOOD PRESSURE SYSTOLIC INCREASED [None]
  - DEPRESSED LEVEL OF CONSCIOUSNESS [None]
  - DRY SKIN [None]
  - ERYTHEMA [None]
  - MYDRIASIS [None]
  - OXYGEN SATURATION DECREASED [None]
  - PALLOR [None]
  - PRURITUS [None]
  - RETCHING [None]
  - THROAT TIGHTNESS [None]
